FAERS Safety Report 17952926 (Version 1)
Quarter: 2020Q2

REPORT INFORMATION
  Report Type: Spontaneous
  Country: FR (occurrence: FR)
  Receive Date: 20200627
  Receipt Date: 20200627
  Transmission Date: 20200714
  Serious: Yes (Hospitalization)
  Sender: FDA-Public Use
  Company Number: FR-ACCORD-187191

PATIENT
  Age: 72 Year
  Sex: Male
  Weight: 81.2 kg

DRUGS (3)
  1. ALLOPURINOL. [Suspect]
     Active Substance: ALLOPURINOL
     Indication: GOUT
     Route: 048
     Dates: start: 201911, end: 20200108
  2. LISINOPRIL. [Suspect]
     Active Substance: LISINOPRIL
     Indication: HYPERTENSION
     Route: 048
     Dates: end: 20200108
  3. COLCHICINE. [Suspect]
     Active Substance: COLCHICINE
     Indication: GOUT
     Route: 048
     Dates: start: 2019, end: 20200108

REACTIONS (1)
  - Agranulocytosis [Recovered/Resolved]

NARRATIVE: CASE EVENT DATE: 20200107
